FAERS Safety Report 25910625 (Version 1)
Quarter: 2025Q4

REPORT INFORMATION
  Report Type: Spontaneous
  Country: US (occurrence: US)
  Receive Date: 20251013
  Receipt Date: 20251013
  Transmission Date: 20260117
  Serious: No
  Sender: GILEAD
  Company Number: US-GILEAD-2025-0730820

PATIENT
  Age: 32 Year
  Sex: Male

DRUGS (4)
  1. DESCOVY [Suspect]
     Active Substance: EMTRICITABINE\TENOFOVIR ALAFENAMIDE FUMARATE
     Indication: Product used for unknown indication
     Dosage: UNK
     Route: 065
  2. TADALAFIL [Concomitant]
     Active Substance: TADALAFIL
     Dosage: 5 MG
  3. IRON [Concomitant]
     Active Substance: IRON
     Indication: Anaemia
     Dosage: EVERYOTHER DAY
  4. CLONAZEPAM [Concomitant]
     Active Substance: CLONAZEPAM

REACTIONS (2)
  - Headache [Unknown]
  - Chest discomfort [Unknown]
